FAERS Safety Report 25768082 (Version 1)
Quarter: 2025Q3

REPORT INFORMATION
  Report Type: Spontaneous
  Country: US (occurrence: None)
  Receive Date: 20250905
  Receipt Date: 20250905
  Transmission Date: 20251020
  Serious: Yes (Hospitalization)
  Sender: FDA-CTU
  Company Number: None

PATIENT
  Age: 73 Year
  Sex: Female

DRUGS (1)
  1. XCOPRI [Suspect]
     Active Substance: CENOBAMATE
     Indication: Epilepsy
     Dosage: FREQUENCY : DAILY;?
     Route: 048
     Dates: start: 20250101, end: 20250420

REACTIONS (5)
  - Drug intolerance [None]
  - Dizziness [None]
  - Somnolence [None]
  - Fall [None]
  - Movement disorder [None]

NARRATIVE: CASE EVENT DATE: 20250803
